FAERS Safety Report 5091593-2 (Version None)
Quarter: 2006Q3

REPORT INFORMATION
  Report Type: 
  Country: None (occurrence: None)
  Receive Date: 20060829
  Receipt Date: 20060720
  Transmission Date: 20061208
  Serious: Yes (Death, Hospitalization)
  Sender: FDA-Public Use
  Company Number: IT-BAYER-200613204GDS

PATIENT
  Age: 59 Year
  Sex: Male
  Weight: 70 kg

DRUGS (3)
  1. SORAFENIB [Suspect]
     Indication: METASTATIC RENAL CELL CARCINOMA
     Route: 048
     Dates: start: 20060516, end: 20060806
  2. INTERFERON ALPHA 2A [Suspect]
     Indication: METASTATIC RENAL CELL CARCINOMA
     Route: 065
  3. INTERFERON ALPHA 2A [Suspect]
     Route: 065

REACTIONS (1)
  - PYREXIA [None]
